FAERS Safety Report 12887384 (Version 1)
Quarter: 2016Q4

REPORT INFORMATION
  Report Type: Spontaneous
  Country: TW (occurrence: TW)
  Receive Date: 20161026
  Receipt Date: 20161026
  Transmission Date: 20170207
  Serious: Yes (Hospitalization)
  Sender: FDA-Public Use
  Company Number: TW-B.I. PHARMACEUTICALS,INC./RIDGEFIELD-2016-BI-067561

PATIENT
  Age: 75 Year
  Sex: Male

DRUGS (11)
  1. NOVOMIX [Suspect]
     Active Substance: INSULIN ASPART
     Dosage: UNIT DOSE: 36; DAILY DOSE: 72
     Route: 065
     Dates: start: 20160605
  2. NOVOMIX [Suspect]
     Active Substance: INSULIN ASPART
     Dosage: UNIT DOSE: 14; DAILY DOSE: 28
     Route: 065
     Dates: start: 20161010
  3. NOVOMIX [Suspect]
     Active Substance: INSULIN ASPART
     Indication: PRODUCT USED FOR UNKNOWN INDICATION
     Dosage: UNIT DOSE: 38; DAILY DOSE: 76
     Route: 065
     Dates: start: 20160412
  4. NOVOMIX [Suspect]
     Active Substance: INSULIN ASPART
     Dosage: UNIT DOSE: 30; DAILY DOSE: 60
     Route: 065
     Dates: start: 20160705
  5. JARDIANCE [Suspect]
     Active Substance: EMPAGLIFLOZIN
     Indication: TYPE 2 DIABETES MELLITUS
     Dosage: UNIT DOSE AND DAILY DOSE: 25
     Route: 065
     Dates: start: 20160705
  6. JARDIANCE [Suspect]
     Active Substance: EMPAGLIFLOZIN
     Dosage: UNIT DOSE AND DAILY DOSE: 25
     Route: 065
     Dates: start: 20161010
  7. NOVOMIX [Suspect]
     Active Substance: INSULIN ASPART
     Dosage: UNIT DOSE: 10; DAILY DOSE: 20
     Route: 065
     Dates: start: 20161010
  8. NOVOMIX [Suspect]
     Active Substance: INSULIN ASPART
     Dosage: UNIT DOSE: 32; DAILY DOSE: 64
     Route: 065
     Dates: start: 20160412
  9. NOVOMIX [Suspect]
     Active Substance: INSULIN ASPART
     Dosage: UNIT DOSE: 34; DAILY DOSE: 68
     Route: 065
     Dates: start: 20160830
  10. ONGLYZA [Concomitant]
     Active Substance: SAXAGLIPTIN HYDROCHLORIDE
     Indication: PRODUCT USED FOR UNKNOWN INDICATION
     Dosage: UNIT DOSE AND DAILY DOSE: 5
     Route: 065
     Dates: start: 20160412
  11. JARDIANCE [Suspect]
     Active Substance: EMPAGLIFLOZIN
     Dosage: UNIT DOSE AND DAILY DOSE: 25
     Route: 065
     Dates: start: 20160830, end: 20161005

REACTIONS (2)
  - Hyperglycaemia [Unknown]
  - Hypoglycaemia [Unknown]

NARRATIVE: CASE EVENT DATE: 20160802
